FAERS Safety Report 10203112 (Version 1)
Quarter: 2014Q2

REPORT INFORMATION
  Report Type: Spontaneous
  Country: PL (occurrence: PL)
  Receive Date: 20140529
  Receipt Date: 20140529
  Transmission Date: 20141212
  Serious: Yes (Other)
  Sender: FDA-Public Use
  Company Number: PHHY2014PL061395

PATIENT
  Age: 67 Year
  Sex: Female
  Weight: 83 kg

DRUGS (4)
  1. PACLITAXEL [Suspect]
     Indication: BREAST CANCER
     Dosage: 333 MG, UNK
     Route: 042
     Dates: start: 20140307, end: 20140307
  2. ONDANSETRON [Concomitant]
     Indication: BREAST CANCER
     Dosage: 16 MG, UNK
     Route: 042
     Dates: start: 20140307, end: 20140307
  3. DEXAVEN [Concomitant]
     Indication: BREAST CANCER
     Dosage: 20 MG, UNK
     Route: 042
     Dates: start: 20140307, end: 20140307
  4. RANITIDINE [Concomitant]
     Indication: BREAST CANCER
     Dosage: 100 MG, UNK
     Route: 042
     Dates: start: 20140307, end: 20140307

REACTIONS (3)
  - Discomfort [Recovered/Resolved]
  - Hypersensitivity [Recovered/Resolved]
  - Dyspnoea [Recovered/Resolved]
